FAERS Safety Report 6495807-3 (Version None)
Quarter: 2009Q4

REPORT INFORMATION
  Report Type: 
  Country: None (occurrence: None)
  Receive Date: 20091214
  Receipt Date: 20090814
  Transmission Date: 20100525
  Serious: No
  Sender: FDA-Public Use
  Company Number: US-BRISTOL-MYERS SQUIBB COMPANY-14741086

PATIENT
  Age: 40 Year
  Sex: Female

DRUGS (11)
  1. ABILIFY [Suspect]
     Indication: MAJOR DEPRESSION
     Dosage: INITIAL DOSE: 2MG DAILY FROM 13NOV09.  ON 26MAR09 DOSE INCREASED TO 5MG DAILY.
     Dates: start: 20081113
  2. LAMICTAL [Concomitant]
  3. KLONOPIN [Concomitant]
  4. TRAZODONE HCL [Concomitant]
  5. WELLBUTRIN [Concomitant]
  6. FLONASE [Concomitant]
  7. SYMBICORT [Concomitant]
  8. VITAMINS [Concomitant]
  9. PATANOL [Concomitant]
     Dosage: PATANOL EYE DROPS.
     Route: 047
  10. MAXAIR [Concomitant]
     Route: 055
  11. ASTHALIN [Concomitant]

REACTIONS (2)
  - INCREASED APPETITE [None]
  - WEIGHT INCREASED [None]
